FAERS Safety Report 5804065-1 (Version None)
Quarter: 2008Q3

REPORT INFORMATION
  Report Type: 
  Country: None (occurrence: None)
  Receive Date: 20080707
  Receipt Date: 20080707
  Transmission Date: 20090109
  Serious: Yes (Disabling)
  Sender: FDA-Public Use
  Company Number: None

PATIENT
  Age: 78 Year
  Sex: Male

DRUGS (2)
  1. ZOMETA [Suspect]
     Dosage: 4 MG EVERY OTHER MONTH IV
     Route: 042
     Dates: start: 20030701, end: 20050101
  2. TAXOTERE [Concomitant]

REACTIONS (3)
  - BONE DISORDER [None]
  - BONE PAIN [None]
  - BONE SWELLING [None]
